FAERS Safety Report 18047064 (Version 1)
Quarter: 2020Q3

REPORT INFORMATION
  Report Type: Spontaneous
  Country: US (occurrence: US)
  Receive Date: 20200720
  Receipt Date: 20200720
  Transmission Date: 20201103
  Serious: Yes (Hospitalization)
  Sender: FDA-Public Use
  Company Number: US-ROCHE-2393511

PATIENT
  Sex: Male

DRUGS (1)
  1. TECENTRIQ [Suspect]
     Active Substance: ATEZOLIZUMAB
     Indication: NEOPLASM MALIGNANT
     Route: 042

REACTIONS (8)
  - Dry mouth [Unknown]
  - Blood sodium decreased [Unknown]
  - Muscle swelling [Unknown]
  - Chest pain [Unknown]
  - Dehydration [Unknown]
  - Migraine [Unknown]
  - Musculoskeletal chest pain [Unknown]
  - Abdominal pain [Unknown]
